FAERS Safety Report 7015448-9 (Version None)
Quarter: 2010Q3

REPORT INFORMATION
  Report Type: 
  Country: None (occurrence: None)
  Receive Date: 20100927
  Receipt Date: 20100924
  Transmission Date: 20110219
  Serious: Yes (Death, Hospitalization)
  Sender: FDA-Public Use
  Company Number: PHHY2010HN63503

PATIENT
  Age: 54 Year
  Sex: Female

DRUGS (2)
  1. TRILEPTAL [Suspect]
     Indication: CONVULSION
     Dosage: 300 MG, TID
     Route: 048
  2. IRBESARTAN [Concomitant]
     Dosage: 300 UNK,

REACTIONS (1)
  - PULMONARY THROMBOSIS [None]
